FAERS Safety Report 8745699 (Version 2)
Quarter: 2013Q4

REPORT INFORMATION
  Report Type: Spontaneous
  Country: US (occurrence: US)
  Receive Date: 20120827
  Receipt Date: 20131031
  Transmission Date: 20140711
  Serious: No
  Sender: FDA-Public Use
  Company Number: US-009507513-2012SP029442

PATIENT
  Sex: Female
  Weight: 102.97 kg

DRUGS (1)
  1. IMPLANON [Suspect]
     Dates: start: 20091027, end: 20120530

REACTIONS (5)
  - Expired drug administered [Recovered/Resolved]
  - Menstruation irregular [Unknown]
  - Implant site fibrosis [Recovering/Resolving]
  - Device difficult to use [Unknown]
  - Device breakage [Unknown]
